FAERS Safety Report 4570281-2 (Version None)
Quarter: 2005Q1

REPORT INFORMATION
  Report Type: 
  Country: None (occurrence: None)
  Receive Date: 20050127
  Receipt Date: 20050127
  Transmission Date: 20050727
  Serious: Yes (Life-Threatening, Hospitalization)
  Sender: FDA-Public Use
  Company Number: None

PATIENT
  Age: 73 Year
  Sex: Male
  Weight: 68 kg

DRUGS (7)
  1. SULFADIAZINE [Suspect]
  2. PYRIMETHAMINE TAB [Suspect]
  3. NYSTATIN SUSP [Concomitant]
  4. OFLOXACIN OPHTHALMIC SOLN [Concomitant]
  5. DIPHENHYDRAMINE CAP [Concomitant]
  6. LUBRICATING OPHTH SOLN [Concomitant]
  7. DOCUSATE CAP [Concomitant]

REACTIONS (1)
  - STEVENS-JOHNSON SYNDROME [None]
